FAERS Safety Report 7356716-0 (Version None)
Quarter: 2011Q1

REPORT INFORMATION
  Report Type: 
  Country: None (occurrence: None)
  Receive Date: 20110316
  Receipt Date: 20110301
  Transmission Date: 20110831
  Serious: Yes (Other)
  Sender: FDA-Public Use
  Company Number: US-BAYER-2011-019729

PATIENT
  Sex: Female
  Weight: 48 kg

DRUGS (1)
  1. RID MOUSSE [Suspect]
     Indication: LICE INFESTATION
     Dosage: UNK
     Route: 061
     Dates: start: 20110101, end: 20110130

REACTIONS (5)
  - ALOPECIA [None]
  - SYSTEMIC LUPUS ERYTHEMATOSUS [None]
  - RASH ERYTHEMATOUS [None]
  - HEADACHE [None]
  - HYPERSENSITIVITY [None]
